FAERS Safety Report 5922581-9 (Version None)
Quarter: 2008Q4

REPORT INFORMATION
  Report Type: 
  Country: None (occurrence: None)
  Receive Date: 20081017
  Receipt Date: 20081009
  Transmission Date: 20090506
  Serious: Yes (Hospitalization, Other)
  Sender: FDA-Public Use
  Company Number: PHHY2008JP24357

PATIENT
  Age: 68 Year
  Sex: Female

DRUGS (4)
  1. DIOVAN [Suspect]
     Indication: HYPERTENSION
     Dosage: 80 MG, QD
     Route: 048
     Dates: start: 20061031, end: 20080617
  2. ARTIST [Concomitant]
     Dosage: UNK
     Dates: start: 20061031, end: 20080617
  3. WARFARIN SODIUM [Concomitant]
     Dosage: 5 MG
     Route: 048
     Dates: start: 20061031, end: 20080617
  4. LASIX [Concomitant]
     Dosage: 40 MG
     Route: 048
     Dates: start: 20061031, end: 20080617

REACTIONS (3)
  - DIALYSIS [None]
  - HYPERKALAEMIA [None]
  - MALAISE [None]
